FAERS Safety Report 4745558-8 (Version None)
Quarter: 2005Q3

REPORT INFORMATION
  Report Type: 
  Country: None (occurrence: None)
  Receive Date: 20050812
  Receipt Date: 20050802
  Transmission Date: 20060218
  Serious: Yes (Hospitalization, Other)
  Sender: FDA-Public Use
  Company Number: HQWYE764008AUG05

PATIENT
  Age: 47 Year
  Sex: Male
  Weight: 76 kg

DRUGS (4)
  1. RAPAMUNE [Suspect]
     Indication: PROPHYLAXIS AGAINST TRANSPLANT REJECTION
     Dosage: 3 MG 1X PER 1 DAY, ORAL
     Route: 048
     Dates: start: 20050419, end: 20050727
  2. MYCOPHENOLATE MOFETIL (MYCOFENOLATE MOFETIL0 [Concomitant]
  3. PREDNISONE [Concomitant]
  4. ZENAPAX [Concomitant]

REACTIONS (3)
  - BLOOD CREATININE INCREASED [None]
  - DRUG INEFFECTIVE [None]
  - KIDNEY TRANSPLANT REJECTION [None]
